FAERS Safety Report 11026256 (Version 1)
Quarter: 2015Q2

REPORT INFORMATION
  Report Type: Spontaneous
  Country: US (occurrence: US)
  Receive Date: 20150414
  Receipt Date: 20150414
  Transmission Date: 20150821
  Serious: No
  Sender: FDA-Public Use
  Company Number: US-ASTRAZENECA-2015SE34222

PATIENT
  Age: 65 Year
  Sex: Male
  Weight: 83 kg

DRUGS (2)
  1. NEXIUM 24HR [Suspect]
     Active Substance: ESOMEPRAZOLE MAGNESIUM
     Indication: ABDOMINAL DISTENSION
     Route: 048
     Dates: start: 20150402
  2. NEXIUM [Suspect]
     Active Substance: ESOMEPRAZOLE MAGNESIUM
     Indication: GASTROOESOPHAGEAL REFLUX DISEASE
     Route: 048
     Dates: start: 2014

REACTIONS (6)
  - Flatulence [Unknown]
  - Sleep disorder due to general medical condition, insomnia type [Unknown]
  - Eructation [Unknown]
  - Intentional product misuse [Unknown]
  - Abdominal distension [Unknown]
  - Discomfort [Unknown]

NARRATIVE: CASE EVENT DATE: 20150402
